FAERS Safety Report 4331272-X (Version None)
Quarter: 2004Q2

REPORT INFORMATION
  Report Type: 
  Country: None (occurrence: None)
  Receive Date: 20040402
  Receipt Date: 20040318
  Transmission Date: 20050107
  Serious: Yes (Death)
  Sender: FDA-Public Use
  Company Number: 2004-BP-02190RO

PATIENT
  Age: 70 Year
  Sex: Male

DRUGS (2)
  1. MORPHINE SUL TAB [Suspect]
     Indication: PAIN
     Dosage: 50 MG Q12H (NR, 1 IN 12 HR)
  2. FENTANYL [Suspect]
     Indication: PAIN
     Dosage: 25 MCG/HR (SEE TEXT), TO
     Route: 061

REACTIONS (8)
  - CONFUSIONAL STATE [None]
  - CYANOSIS CENTRAL [None]
  - MALIGNANT NEOPLASM PROGRESSION [None]
  - MIOSIS [None]
  - RESPIRATORY DEPRESSION [None]
  - RESPIRATORY RATE DECREASED [None]
  - SEDATION [None]
  - SOMNOLENCE [None]
